FAERS Safety Report 15676652 (Version 1)
Quarter: 2018Q4

REPORT INFORMATION
  Report Type: Spontaneous
  Country: JP (occurrence: JP)
  Receive Date: 20181130
  Receipt Date: 20181130
  Transmission Date: 20190205
  Serious: Yes (Other)
  Sender: FDA-Public Use
  Company Number: JP-CLINIGEN GROUP PLC/ CLINIGEN HEALTHCARE LTD-JP-CLGN-18-00485

PATIENT
  Age: 11 Year
  Sex: Female

DRUGS (6)
  1. CYCLOPHOSPHAMIDE. [Concomitant]
     Active Substance: CYCLOPHOSPHAMIDE
     Indication: PRECURSOR B-LYMPHOBLASTIC LYMPHOMA RECURRENT
  2. ACYCLOVIR. [Concomitant]
     Active Substance: ACYCLOVIR
     Indication: HERPES ZOSTER DISSEMINATED
  3. FOSCARNET SODIUM. [Suspect]
     Active Substance: FOSCARNET SODIUM
     Indication: HERPES ZOSTER DISSEMINATED
  4. CLOFARABINE. [Concomitant]
     Active Substance: CLOFARABINE
     Indication: PRECURSOR B-LYMPHOBLASTIC LYMPHOMA RECURRENT
  5. FOSCARNET SODIUM. [Suspect]
     Active Substance: FOSCARNET SODIUM
     Indication: VARICELLA ZOSTER PNEUMONIA
  6. ETOPOSIDE. [Concomitant]
     Active Substance: ETOPOSIDE
     Indication: PRECURSOR B-LYMPHOBLASTIC LYMPHOMA RECURRENT

REACTIONS (5)
  - Off label use [Unknown]
  - Renal impairment [Unknown]
  - Cutaneous symptom [Unknown]
  - Precursor B-lymphoblastic lymphoma recurrent [Unknown]
  - Condition aggravated [Unknown]
